FAERS Safety Report 23545779 (Version 3)
Quarter: 2024Q2

REPORT INFORMATION
  Report Type: Spontaneous
  Country: US (occurrence: US)
  Receive Date: 20240220
  Receipt Date: 20240404
  Transmission Date: 20240716
  Serious: No
  Sender: FDA-Public Use
  Company Number: US-PFIZER INC-202400043863

PATIENT
  Age: 70 Year
  Sex: Male
  Weight: 96.7 kg

DRUGS (3)
  1. PROPOFOL [Suspect]
     Active Substance: PROPOFOL
     Dosage: 700 MG
     Route: 042
  2. PROPOFOL [Suspect]
     Active Substance: PROPOFOL
     Dosage: 700 MG
     Route: 042
  3. METFORMIN [Concomitant]
     Active Substance: METFORMIN HYDROCHLORIDE
     Indication: Diabetes mellitus
     Dosage: 500 MG, 2X/DAY

REACTIONS (2)
  - Drug effect less than expected [Unknown]
  - Incorrect dose administered [Unknown]
